FAERS Safety Report 6428520-9 (Version None)
Quarter: 2009Q4

REPORT INFORMATION
  Report Type: 
  Country: None (occurrence: None)
  Receive Date: 20091105
  Receipt Date: 20091030
  Transmission Date: 20100525
  Serious: Yes (Other)
  Sender: FDA-Public Use
  Company Number: BR-AVENTIS-200922163GDDC

PATIENT
  Age: 3 Year
  Sex: Female
  Weight: 18.4 kg

DRUGS (4)
  1. LANTUS [Suspect]
     Dates: start: 20090801
  2. AUTOPEN 24 [Suspect]
     Dates: start: 20090801
  3. NOVORAPID [Concomitant]
     Dosage: FREQUENCY: BEFORE MEALS
     Route: 058
     Dates: start: 20090823
  4. NYSTATIN [Concomitant]
     Indication: URINARY TRACT INFECTION
     Dosage: DOSE: UNSPECIFIED DOSE AFTER URINATING
     Route: 061
     Dates: start: 20090701

REACTIONS (6)
  - EYE PAIN [None]
  - HYPERGLYCAEMIA [None]
  - KETOACIDOSIS [None]
  - OFF LABEL USE [None]
  - PAIN IN EXTREMITY [None]
  - VISUAL IMPAIRMENT [None]
